FAERS Safety Report 24259606 (Version 1)
Quarter: 2024Q3

REPORT INFORMATION
  Report Type: Spontaneous
  Country: US (occurrence: US)
  Receive Date: 20240828
  Receipt Date: 20240828
  Transmission Date: 20241017
  Serious: Yes (Hospitalization, Other)
  Sender: GLAXOSMITHKLINE
  Company Number: US-GLAXOSMITHKLINE-US2024104530

PATIENT

DRUGS (1)
  1. BREO ELLIPTA [Suspect]
     Active Substance: FLUTICASONE FUROATE\VILANTEROL TRIFENATATE
     Indication: Bronchitis
     Dosage: UNK

REACTIONS (7)
  - Surgery [Unknown]
  - Urinary tract infection [Unknown]
  - Pneumonia [Unknown]
  - Catheter placement [Unknown]
  - Illness [Unknown]
  - Bronchitis [Unknown]
  - Product use in unapproved indication [Unknown]
